FAERS Safety Report 5077825-5 (Version None)
Quarter: 2006Q3

REPORT INFORMATION
  Report Type: 
  Country: None (occurrence: None)
  Receive Date: 20060807
  Receipt Date: 20060724
  Transmission Date: 20061208
  Serious: Yes (Hospitalization)
  Sender: FDA-Public Use
  Company Number: 29626

PATIENT
  Age: 64 Year
  Sex: Male

DRUGS (10)
  1. TAMBOCOR [Suspect]
     Indication: ATRIAL FIBRILLATION
     Dosage: SEE IMAGE, ORAL
     Route: 048
     Dates: start: 20060501, end: 20060501
  2. TAMBOCOR [Suspect]
     Indication: TACHYCARDIA
     Dosage: SEE IMAGE, ORAL
     Route: 048
     Dates: start: 20060501, end: 20060501
  3. TAMBOCOR [Suspect]
     Indication: ATRIAL FIBRILLATION
     Dosage: SEE IMAGE, ORAL
     Route: 048
     Dates: start: 20060501, end: 20060601
  4. TAMBOCOR [Suspect]
     Indication: TACHYCARDIA
     Dosage: SEE IMAGE, ORAL
     Route: 048
     Dates: start: 20060501, end: 20060601
  5. TAMBOCOR [Suspect]
     Indication: ATRIAL FIBRILLATION
     Dosage: SEE IMAGE, ORAL
     Route: 048
     Dates: start: 20060601, end: 20060721
  6. TAMBOCOR [Suspect]
     Indication: TACHYCARDIA
     Dosage: SEE IMAGE, ORAL
     Route: 048
     Dates: start: 20060601, end: 20060721
  7. COUMADIN [Concomitant]
  8. ASPIRIN [Concomitant]
  9. ATIVAN [Concomitant]
  10. AMOXICILLIN [Concomitant]

REACTIONS (5)
  - ARRHYTHMIA [None]
  - ATRIAL FIBRILLATION [None]
  - CLAUSTROPHOBIA [None]
  - HEART RATE DECREASED [None]
  - HYPOTENSION [None]
